FAERS Safety Report 22830118 (Version 7)
Quarter: 2023Q4

REPORT INFORMATION
  Report Type: Spontaneous
  Country: US (occurrence: US)
  Receive Date: 20230816
  Receipt Date: 20231107
  Transmission Date: 20240110
  Serious: Yes (Hospitalization, Other)
  Sender: FDA-Public Use
  Company Number: US-BEH-2023162054

PATIENT
  Age: 24 Year
  Sex: Female

DRUGS (19)
  1. BERINERT [Suspect]
     Active Substance: HUMAN C1-ESTERASE INHIBITOR
     Indication: Hereditary angioedema
     Dosage: 1300 INTERNATIONAL UNIT, PRN
     Route: 042
     Dates: start: 202304
  2. BERINERT [Suspect]
     Active Substance: HUMAN C1-ESTERASE INHIBITOR
     Indication: Hereditary angioedema
     Dosage: 1300 INTERNATIONAL UNIT, PRN
     Route: 042
     Dates: start: 202304
  3. BERINERT [Suspect]
     Active Substance: HUMAN C1-ESTERASE INHIBITOR
     Dosage: 1 DOSAGE FORM
     Route: 065
     Dates: start: 20230731
  4. BERINERT [Suspect]
     Active Substance: HUMAN C1-ESTERASE INHIBITOR
     Dosage: 1 DOSAGE FORM
     Route: 065
     Dates: start: 20230731
  5. BERINERT [Suspect]
     Active Substance: HUMAN C1-ESTERASE INHIBITOR
     Dosage: 2 DOSAGE FORM
     Route: 065
     Dates: start: 202308
  6. BERINERT [Suspect]
     Active Substance: HUMAN C1-ESTERASE INHIBITOR
     Dosage: 2 DOSAGE FORM
     Route: 065
     Dates: start: 202308
  7. BERINERT [Suspect]
     Active Substance: HUMAN C1-ESTERASE INHIBITOR
     Dosage: 1 DOSAGE FORM PER ATTACK
     Route: 065
     Dates: start: 20230809
  8. BERINERT [Suspect]
     Active Substance: HUMAN C1-ESTERASE INHIBITOR
     Dosage: 1 DOSAGE FORM PER ATTACK
     Route: 065
     Dates: start: 20230809
  9. BERINERT [Suspect]
     Active Substance: HUMAN C1-ESTERASE INHIBITOR
     Dosage: SEVERAL DOSES IN DA FEW DAYS
     Route: 065
     Dates: start: 20230808
  10. BERINERT [Suspect]
     Active Substance: HUMAN C1-ESTERASE INHIBITOR
     Dosage: SEVERAL DOSES IN DA FEW DAYS
     Route: 065
     Dates: start: 20230808
  11. BERINERT [Suspect]
     Active Substance: HUMAN C1-ESTERASE INHIBITOR
     Dosage: 1300 INTERNATIONAL UNIT, PRN
     Route: 042
     Dates: start: 202304
  12. BERINERT [Suspect]
     Active Substance: HUMAN C1-ESTERASE INHIBITOR
     Dosage: 1300 INTERNATIONAL UNIT, PRN
     Route: 042
     Dates: start: 202304
  13. TAKHZYRO [Concomitant]
     Active Substance: LANADELUMAB-FLYO
     Indication: Hereditary angioedema
     Dosage: 300 MILLIGRAM, QOW
     Route: 058
     Dates: start: 20220828
  14. TAKHZYRO [Concomitant]
     Active Substance: LANADELUMAB-FLYO
     Dosage: 300 MILLIGRAM, QOW
     Route: 058
     Dates: start: 20221108
  15. TAKHZYRO [Concomitant]
     Active Substance: LANADELUMAB-FLYO
     Dosage: 300 MILLIGRAM, QOW
     Route: 058
     Dates: start: 20221109
  16. TAKHZYRO [Concomitant]
     Active Substance: LANADELUMAB-FLYO
     Dosage: 300 MILLIGRAM, QOW
     Route: 058
     Dates: start: 202211
  17. TAKHZYRO [Concomitant]
     Active Substance: LANADELUMAB-FLYO
     Dosage: 300 MILLIGRAM, QOW
     Route: 058
     Dates: start: 20221202
  18. ICATIBANT [Concomitant]
     Active Substance: ICATIBANT ACETATE
     Dosage: UNK, QOD
  19. DROXIDOPA [Concomitant]
     Active Substance: DROXIDOPA

REACTIONS (13)
  - Internal haemorrhage [Unknown]
  - Faeces discoloured [Recovering/Resolving]
  - Gastrointestinal disorder [Recovering/Resolving]
  - Device issue [Recovering/Resolving]
  - Product preparation issue [Recovering/Resolving]
  - Device defective [Recovering/Resolving]
  - Complication associated with device [Recovering/Resolving]
  - Urinary tract infection [Recovering/Resolving]
  - Coma [Recovered/Resolved]
  - Staphylococcal infection [Recovering/Resolving]
  - Kidney infection [Recovering/Resolving]
  - Hypersensitivity [Unknown]
  - Complication associated with device [Unknown]

NARRATIVE: CASE EVENT DATE: 20230621
